FAERS Safety Report 5012728-3 (Version None)
Quarter: 2006Q2

REPORT INFORMATION
  Report Type: 
  Country: None (occurrence: None)
  Receive Date: 20060524
  Receipt Date: 20060519
  Transmission Date: 20061013
  Serious: Yes (Death)
  Sender: FDA-Public Use
  Company Number: 2006-03-1909

PATIENT
  Age: 63 Year
  Sex: Female
  Weight: 90 kg

DRUGS (7)
  1. TEMODAL [Suspect]
     Indication: GLIOBLASTOMA
     Dosage: 140 MG QD ORAL
     Route: 048
     Dates: start: 20050423, end: 20050607
  2. RADIATION THERAPY [Concomitant]
  3. DEPAKINE CHRONO (SODIUM VALPROATE) [Concomitant]
  4. LEXOMIL (BROMAZEPAM) [Concomitant]
  5. PROZAC [Concomitant]
  6. ACTONEL [Concomitant]
  7. LESCOL [Concomitant]

REACTIONS (12)
  - ANAL ABSCESS [None]
  - BONE MARROW FAILURE [None]
  - DYSPLASIA [None]
  - FEBRILE BONE MARROW APLASIA [None]
  - GINGIVAL BLEEDING [None]
  - LUNG DISORDER [None]
  - MYELODYSPLASTIC SYNDROME [None]
  - NEUTROPENIA [None]
  - PAIN [None]
  - SEPSIS [None]
  - SUPERINFECTION [None]
  - THROMBOCYTOPENIA [None]
